FAERS Safety Report 8762694 (Version 1)
Quarter: 2012Q4

REPORT INFORMATION
  Report Type: 
  Country: FR (occurrence: FR)
  Receive Date: 20120831
  Receipt Date: 20120831
  Transmission Date: 20130627
  Serious: Yes (Other)
  Sender: FDA-Public Use
  Company Number: FR-B.I. PHARMACEUTICALS,INC./RIDGEFIELD-2012-FF-01106FF

PATIENT

DRUGS (2)
  1. PRADAXA [Suspect]
     Indication: CARDIAC VALVE DISEASE
     Route: 048
  2. ANTIVITAMIN K [Suspect]
     Indication: CARDIAC VALVE DISEASE

REACTIONS (3)
  - Cerebrovascular accident [Unknown]
  - Hemiplegia [Unknown]
  - Dyspepsia [Unknown]
